FAERS Safety Report 7312566-2 (Version None)
Quarter: 2011Q1

REPORT INFORMATION
  Report Type: 
  Country: None (occurrence: None)
  Receive Date: 20110224
  Receipt Date: 20101216
  Transmission Date: 20110831
  Serious: No
  Sender: FDA-Public Use
  Company Number: US-BAYER-2011-009516

PATIENT
  Sex: Male
  Weight: 91 kg

DRUGS (5)
  1. OXCARBAZEPINE [Concomitant]
     Dosage: DAILY DOSE 450 MG
  2. ALEVE (CAPLET) [Suspect]
     Indication: PRODUCT USED FOR UNKNOWN INDICATION
     Dosage: UNK
     Route: 048
     Dates: start: 20101216
  3. CRESTOR [Concomitant]
  4. DIPHENHYDRAMINE [Concomitant]
  5. DIAZEPAM [Concomitant]

REACTIONS (1)
  - NO ADVERSE EVENT [None]
